FAERS Safety Report 5920232-0 (Version None)
Quarter: 2008Q4

REPORT INFORMATION
  Report Type: 
  Country: None (occurrence: None)
  Receive Date: 20081016
  Receipt Date: 20081009
  Transmission Date: 20090506
  Serious: Yes (Life-Threatening)
  Sender: FDA-Public Use
  Company Number: JP-BAYER-200812434BYL

PATIENT
  Age: 80 Year
  Sex: Female

DRUGS (4)
  1. AVELOX [Suspect]
     Indication: PNEUMONIA
     Dosage: UNIT DOSE: 400 MG
     Route: 048
     Dates: start: 20081006, end: 20081009
  2. AMIKACIN SULFATE [Suspect]
     Indication: PNEUMONIA
     Dosage: UNIT DOSE: 300 MG
     Route: 041
     Dates: start: 20081006, end: 20081008
  3. ROCEPHIN [Suspect]
     Indication: PNEUMONIA
     Route: 041
     Dates: start: 20081003, end: 20081005
  4. DALACIN-S [Suspect]
     Indication: PNEUMONIA
     Route: 041
     Dates: start: 20081003, end: 20081005

REACTIONS (1)
  - THROMBOCYTOPENIA [None]
